FAERS Safety Report 9030990 (Version 5)
Quarter: 2013Q1

REPORT INFORMATION
  Report Type: Spontaneous
  Country: ES (occurrence: ES)
  Receive Date: 20130123
  Receipt Date: 20130307
  Transmission Date: 20140127
  Serious: Yes (Other)
  Sender: FDA-Public Use
  Company Number: ES-VERTEX PHARMACEUTICALS INC.-2013-000771

PATIENT
  Sex: Male

DRUGS (8)
  1. INCIVO [Suspect]
     Indication: HEPATITIS C
     Dosage: 750 MG, TID
     Route: 048
     Dates: start: 20121029, end: 20121226
  2. INTELENCE [Suspect]
     Indication: HIV INFECTION
     Dosage: 400 MG, QD
     Route: 048
     Dates: start: 20121030, end: 20130120
  3. PEGINTERFERON ALFA [Concomitant]
     Indication: HEPATITIS C
     Dosage: DOSAGE FORM: UNSPECIFIED
     Route: 065
     Dates: start: 20121029, end: 20121226
  4. RIBAVIRIN [Concomitant]
     Indication: HEPATITIS C
     Dosage: DOSAGE FORM: UNSPECIFIED
     Route: 065
     Dates: start: 20121029, end: 20121226
  5. TENOFOVIR [Concomitant]
     Indication: HIV INFECTION
     Dosage: UNK
     Route: 065
  6. EMTRICITABINA [Concomitant]
     Indication: HIV INFECTION
     Dosage: DOSAGE FORM: UNSPECIFIED
  7. EMTRICITABINA [Concomitant]
     Route: 065
  8. EMTRICITABINA [Concomitant]
     Route: 065

REACTIONS (3)
  - Rash [Recovered/Resolved]
  - Anaemia [Unknown]
  - Off label use [Recovered/Resolved]
